FAERS Safety Report 14601733 (Version 4)
Quarter: 2018Q3

REPORT INFORMATION
  Report Type: Spontaneous
  Country: US (occurrence: US)
  Receive Date: 20180306
  Receipt Date: 20180911
  Transmission Date: 20181010
  Serious: No
  Sender: FDA-Public Use
  Company Number: US-BIOGEN-2018BI00531482

PATIENT
  Sex: Male

DRUGS (4)
  1. TECFIDERA [Suspect]
     Active Substance: DIMETHYL FUMARATE
     Route: 065
     Dates: start: 20140828, end: 20170801
  2. TECFIDERA [Suspect]
     Active Substance: DIMETHYL FUMARATE
     Dosage: MAINTAINENCE DOSE
     Route: 048
     Dates: end: 2015
  3. TECFIDERA [Suspect]
     Active Substance: DIMETHYL FUMARATE
     Indication: MULTIPLE SCLEROSIS
     Route: 065
     Dates: start: 20140828
  4. TECFIDERA [Suspect]
     Active Substance: DIMETHYL FUMARATE
     Dosage: STARTER DOSE
     Route: 048

REACTIONS (11)
  - Asthenia [Not Recovered/Not Resolved]
  - Fatigue [Unknown]
  - Peripheral swelling [Not Recovered/Not Resolved]
  - Memory impairment [Unknown]
  - Intentional product misuse [Unknown]
  - Cognitive disorder [Unknown]
  - Rhinorrhoea [Not Recovered/Not Resolved]
  - Feeling abnormal [Unknown]
  - Hypoaesthesia [Not Recovered/Not Resolved]
  - Headache [Not Recovered/Not Resolved]
  - Multiple sclerosis relapse [Unknown]
